FAERS Safety Report 17896125 (Version 2)
Quarter: 2020Q3

REPORT INFORMATION
  Report Type: Spontaneous
  Country: US (occurrence: US)
  Receive Date: 20200615
  Receipt Date: 20200731
  Transmission Date: 20201103
  Serious: No
  Sender: FDA-Public Use
  Company Number: US-VERTEX PHARMACEUTICALS-2020-012667

PATIENT
  Sex: Female
  Weight: 65 kg

DRUGS (8)
  1. SODIUM CHLORIDE 0.9% [Concomitant]
     Active Substance: SODIUM CHLORIDE
     Dosage: 0.9% VIAL?NEB
  2. ZYRTEC [Concomitant]
     Active Substance: CETIRIZINE HYDROCHLORIDE
     Dosage: 10 MG
  3. VITAMIN B?1 [Concomitant]
     Active Substance: THIAMINE HYDROCHLORIDE
     Dosage: 100MG TABLET
  4. VITAMIN D2 [Concomitant]
     Active Substance: ERGOCALCIFEROL
     Dosage: 1250 MCG CAPSULE
  5. PULMOZYME [Concomitant]
     Active Substance: DORNASE ALFA
     Dosage: 1 MG/ML SOLUTION
  6. ALBUTEROL SULFATE. [Concomitant]
     Active Substance: ALBUTEROL SULFATE
  7. CREON [Concomitant]
     Active Substance: PANCRELIPASE AMYLASE\PANCRELIPASE LIPASE\PANCRELIPASE PROTEASE
     Dosage: 3?9.5?15 K CAPSULE DR
  8. TRIKAFTA [Suspect]
     Active Substance: ELEXACAFTOR\IVACAFTOR\TEZACAFTOR
     Indication: CYSTIC FIBROSIS
     Dosage: 2 ORANGE TABS (100MG ELEXACAFTOR/50MG TEZACAFTOR/75MG IVACAFTOR) AM; NO BLUE TAB
     Route: 048
     Dates: start: 20200511, end: 20200629

REACTIONS (4)
  - Cough [Recovered/Resolved]
  - Hepatic enzyme increased [Unknown]
  - Depressed mood [Not Recovered/Not Resolved]
  - Headache [Recovered/Resolved]

NARRATIVE: CASE EVENT DATE: 2020
